FAERS Safety Report 8232556-5 (Version None)
Quarter: 2012Q1

REPORT INFORMATION
  Report Type: 
  Country: None (occurrence: None)
  Receive Date: 20120323
  Receipt Date: 20120320
  Transmission Date: 20120608
  Serious: Yes (Life-Threatening, Hospitalization, Other)
  Sender: FDA-Public Use
  Company Number: GXKR2012DE001232

PATIENT

DRUGS (3)
  1. METHOTREXATE [Suspect]
     Indication: MULTIPLE SCLEROSIS
     Dosage: DAILY DOSE: 7.5 DF DOSAGE FORM EVERY WEEK
     Route: 048
     Dates: start: 20090101, end: 20101001
  2. COPAXONE [Concomitant]
     Indication: MULTIPLE SCLEROSIS
     Dosage: DAILY DOSE: 1 DF DOSAGE FORM EVERY DAY
     Route: 058
     Dates: start: 20010101, end: 20050101
  3. MITOXANTRONE [Suspect]
     Indication: MULTIPLE SCLEROSIS
     Dosage: DAILY DOSE: 113 MG/M2 MILLIGRAM(S)/SQ. METER EVERY 3 MONTH
     Route: 042
     Dates: start: 20050101, end: 20080101

REACTIONS (2)
  - METASTASES TO LIVER [None]
  - SMALL INTESTINE CARCINOMA METASTATIC [None]
